FAERS Safety Report 10361096 (Version 1)
Quarter: 2014Q3

REPORT INFORMATION
  Report Type: Spontaneous
  Country: BR (occurrence: None)
  Receive Date: 20140731
  Receipt Date: 20140731
  Transmission Date: 20150326
  Serious: Yes (Hospitalization)
  Sender: FDA-Public Use
  Company Number: 2014HINLIT0674

PATIENT
  Age: 52 Year
  Sex: Male

DRUGS (1)
  1. LITHIUM [Suspect]
     Active Substance: LITHIUM CARBONATE
     Indication: BIPOLAR DISORDER
     Dosage: 900 MG/DAY

REACTIONS (15)
  - Tachycardia [None]
  - Toxicity to various agents [None]
  - Depressed level of consciousness [None]
  - Urinary tract infection [None]
  - Diabetes insipidus [None]
  - Progressive multiple sclerosis [None]
  - Sepsis [None]
  - Somnolence [None]
  - Dysarthria [None]
  - Cerebellar atrophy [None]
  - Confusional state [None]
  - Pyrexia [None]
  - Decreased appetite [None]
  - Tremor [None]
  - Peripheral coldness [None]
